FAERS Safety Report 25763775 (Version 1)
Quarter: 2025Q3

REPORT INFORMATION
  Report Type: Spontaneous
  Country: US (occurrence: US)
  Receive Date: 20250905
  Receipt Date: 20250905
  Transmission Date: 20251020
  Serious: No
  Sender: DOMPE FARMACEUTICI
  Company Number: US-FARMAPROD-202411-3787

PATIENT
  Sex: Female

DRUGS (6)
  1. OXERVATE [Suspect]
     Active Substance: CENEGERMIN-BKBJ
     Indication: Neurotrophic keratopathy
     Route: 047
     Dates: start: 20240926
  2. OXERVATE [Suspect]
     Active Substance: CENEGERMIN-BKBJ
  3. EZETIMIBE [Concomitant]
     Active Substance: EZETIMIBE
  4. ALENDRONATE SODIUM [Concomitant]
     Active Substance: ALENDRONATE SODIUM
  5. LOSARTAN POTASSIUM [Concomitant]
     Active Substance: LOSARTAN POTASSIUM
  6. NURETI [Concomitant]

REACTIONS (6)
  - Eye irritation [Recovering/Resolving]
  - Lacrimation increased [Unknown]
  - Wrong technique in product usage process [Not Recovered/Not Resolved]
  - Eye pain [Recovering/Resolving]
  - Eye pruritus [Unknown]
  - Product administration error [Unknown]
